FAERS Safety Report 17180109 (Version 1)
Quarter: 2019Q4

REPORT INFORMATION
  Report Type: Spontaneous
  Country: US (occurrence: US)
  Receive Date: 20191220
  Receipt Date: 20191220
  Transmission Date: 20200122
  Serious: No
  Sender: FDA-Public Use
  Company Number: US-ASTRAZENECA-2019SF79336

PATIENT
  Sex: Female
  Weight: 6.9 kg

DRUGS (23)
  1. ERYTHROMYCIN ETHYLSUCCINATE. [Concomitant]
     Active Substance: ERYTHROMYCIN ETHYLSUCCINATE
  2. EPOGEN [Concomitant]
     Active Substance: ERYTHROPOIETIN
  3. MIRALAX [Concomitant]
     Active Substance: POLYETHYLENE GLYCOL 3350
  4. SODIUM PHOSPHATE D5W [Concomitant]
  5. SYNAGIS [Suspect]
     Active Substance: PALIVIZUMAB
     Indication: PREMATURE BABY
     Route: 030
  6. SYNAGIS [Suspect]
     Active Substance: PALIVIZUMAB
     Indication: PREMATURE BABY
     Dosage: 50MG/0.5ML VL LIQUID
     Route: 030
  7. NEPHRONEX [Concomitant]
     Dosage: 5UG/ML
  8. VITAMIN D400 [Concomitant]
  9. GENTAMICIN SULFATE. [Concomitant]
     Active Substance: GENTAMICIN SULFATE
  10. CALCITROL [Concomitant]
  11. COLACE [Concomitant]
     Active Substance: DOCUSATE SODIUM
  12. MELATONIN PLUS L-THEANINE [Concomitant]
  13. AMLODIPINE BESYLATE POWDER [Concomitant]
  14. NYSTATIN. [Concomitant]
     Active Substance: NYSTATIN
  15. TRIAMCINOLONE ACETONIDE. [Concomitant]
     Active Substance: TRIAMCINOLONE ACETONIDE
  16. IRON [Concomitant]
     Active Substance: IRON
  17. VALTASSA [Concomitant]
  18. SODIUM CHLORIDE 0.9 PERCENT [Concomitant]
  19. CYPROHEPADINE HCL [Concomitant]
  20. OMEPRAZOLE. [Concomitant]
     Active Substance: OMEPRAZOLE
  21. MUPIROCIN. [Concomitant]
     Active Substance: MUPIROCIN
  22. HEPARIN LOCK FLUSH [Concomitant]
     Active Substance: HEPARIN SODIUM
  23. ACETAMINOPHEN. [Concomitant]
     Active Substance: ACETAMINOPHEN

REACTIONS (2)
  - Epistaxis [Recovered/Resolved]
  - Crying [Recovered/Resolved]
